FAERS Safety Report 15814447 (Version 1)
Quarter: 2019Q1

REPORT INFORMATION
  Report Type: Spontaneous
  Country: NP (occurrence: NP)
  Receive Date: 20190111
  Receipt Date: 20190111
  Transmission Date: 20190417
  Serious: Yes (Other)
  Sender: FDA-Public Use
  Company Number: NP-MYLANLABS-2019M1001622

PATIENT
  Age: 51 Year
  Sex: Male

DRUGS (4)
  1. PYRAZINAMIDE. [Suspect]
     Active Substance: PYRAZINAMIDE
     Indication: PULMONARY TUBERCULOSIS
     Dosage: AS A PART OF HRZE REGIMEN
     Route: 065
  2. ISONIAZID. [Suspect]
     Active Substance: ISONIAZID
     Indication: PULMONARY TUBERCULOSIS
     Dosage: AS A PART OF HRZE REGIMEN FOR 2 MONTHS AND THEN FOR 4 MONTHS
     Route: 065
  3. ETHAMBUTOL [Suspect]
     Active Substance: ETHAMBUTOL HYDROCHLORIDE
     Indication: PULMONARY TUBERCULOSIS
     Dosage: AS A PART OF HRZE REGIMEN
     Route: 065
  4. RIFAMPICIN [Suspect]
     Active Substance: RIFAMPIN
     Indication: PULMONARY TUBERCULOSIS
     Dosage: AS A PART OF HRZE REGIMEN FOR 2 MONTHS AND THEN FOR 4 MONTHS
     Route: 065

REACTIONS (1)
  - Pulmonary nocardiosis [Recovered/Resolved]
